FAERS Safety Report 15757718 (Version 1)
Quarter: 2018Q4

REPORT INFORMATION
  Report Type: Spontaneous
  Country: GB (occurrence: GB)
  Receive Date: 20181225
  Receipt Date: 20181225
  Transmission Date: 20190205
  Serious: Yes (Hospitalization, Other)
  Sender: FDA-Public Use
  Company Number: GB-AUROBINDO-AUR-APL-2018-061916

PATIENT
  Age: 81 Year
  Sex: Male

DRUGS (4)
  1. SIMVASTATIN. [Suspect]
     Active Substance: SIMVASTATIN
     Indication: PROPHYLAXIS
     Dosage: 40 MG, UNK (STARTED LONG TERM)
     Route: 048
     Dates: end: 20061119
  2. FLUCONAZOLE. [Interacting]
     Active Substance: FLUCONAZOLE
     Indication: OESOPHAGITIS
     Dosage: 50 MILLIGRAM, DAILY
     Route: 065
     Dates: start: 20061026, end: 20061120
  3. OCTREOTIDE. [Concomitant]
     Active Substance: OCTREOTIDE
     Indication: VIPOMA
     Dosage: 100 UG, QD
     Route: 058
     Dates: start: 20061007
  4. PARACETAMOL [Concomitant]
     Active Substance: ACETAMINOPHEN
     Indication: PAIN
     Dosage: 1 GRAM, DAILY
     Route: 048

REACTIONS (3)
  - Rhabdomyolysis [Not Recovered/Not Resolved]
  - Renal impairment [Not Recovered/Not Resolved]
  - Drug interaction [Unknown]
